FAERS Safety Report 16818828 (Version 2)
Quarter: 2019Q3

REPORT INFORMATION
  Report Type: Report from Study
  Country: CA (occurrence: CA)
  Receive Date: 20190917
  Receipt Date: 20190926
  Transmission Date: 20191005
  Serious: Yes (Other)
  Sender: FDA-Public Use
  Company Number: CA-JNJFOC-20190908517

PATIENT
  Age: 11 Year
  Sex: Female
  Weight: 50 kg

DRUGS (1)
  1. REMICADE [Suspect]
     Active Substance: INFLIXIMAB
     Indication: COLITIS ULCERATIVE
     Dosage: ALSO REPORTED AS 5 MG/KG
     Route: 042
     Dates: start: 20190724

REACTIONS (3)
  - Colitis ulcerative [Not Recovered/Not Resolved]
  - Epistaxis [Unknown]
  - Localised infection [Unknown]

NARRATIVE: CASE EVENT DATE: 201909
